FAERS Safety Report 12679597 (Version 1)
Quarter: 2016Q3

REPORT INFORMATION
  Report Type: Spontaneous
  Country: US (occurrence: None)
  Receive Date: 20160823
  Receipt Date: 20160823
  Transmission Date: 20161109
  Serious: No
  Sender: FDA-Public Use
  Company Number: None

PATIENT
  Age: 51 Year
  Sex: Female
  Weight: 98.43 kg

DRUGS (10)
  1. FLUOXETINE [Concomitant]
     Active Substance: FLUOXETINE HYDROCHLORIDE
  2. CARVEDILOL. [Concomitant]
     Active Substance: CARVEDILOL
  3. VITAMIN B12 [Concomitant]
     Active Substance: CYANOCOBALAMIN
  4. KERYDIN [Suspect]
     Active Substance: TAVABOROLE
     Indication: LOCALISED INFECTION
     Dosage: 1 DROP(S) ONCE A DAY APPLIED TO TOENAILS
     Route: 061
     Dates: start: 20160723, end: 20160815
  5. NASONEX [Concomitant]
     Active Substance: MOMETASONE FUROATE
  6. BABY ASPIRIN [Suspect]
     Active Substance: ASPIRIN
  7. BENICAR [Concomitant]
     Active Substance: OLMESARTAN MEDOXOMIL
  8. CRESTOR [Concomitant]
     Active Substance: ROSUVASTATIN CALCIUM
  9. VITAMIN D3 [Concomitant]
     Active Substance: CHOLECALCIFEROL
  10. COQ10 [Concomitant]
     Active Substance: UBIDECARENONE

REACTIONS (3)
  - Ingrowing nail [None]
  - Irritability [None]
  - Erythema [None]

NARRATIVE: CASE EVENT DATE: 20160815
